FAERS Safety Report 5695271-8 (Version None)
Quarter: 2008Q2

REPORT INFORMATION
  Report Type: 
  Country: None (occurrence: None)
  Receive Date: 20080404
  Receipt Date: 20080402
  Transmission Date: 20081010
  Serious: Yes (Life-Threatening)
  Sender: FDA-Public Use
  Company Number: ES-BOEHRINGER INGELHEIM GMBH, GERMANY-2008-ES-00448ES

PATIENT
  Age: 67 Year
  Sex: Male

DRUGS (6)
  1. MICARDIS [Suspect]
     Indication: HYPERTENSION
     Route: 048
     Dates: end: 20080210
  2. ENALAPRIL MALEATE [Suspect]
     Indication: HYPERTENSION
     Route: 048
     Dates: end: 20080210
  3. ALDACTONE [Suspect]
     Indication: CARDIAC FAILURE CONGESTIVE
     Route: 048
     Dates: end: 20080210
  4. CARVEDILOL [Concomitant]
     Indication: HYPERTENSION
     Route: 048
  5. SEGURIL [Concomitant]
     Indication: CARDIAC FAILURE CONGESTIVE
     Route: 048
  6. ADIRO [Concomitant]
     Indication: ISCHAEMIC CARDIOMYOPATHY
     Route: 048

REACTIONS (1)
  - HYPERKALAEMIA [None]
